FAERS Safety Report 24146995 (Version 1)
Quarter: 2024Q3

REPORT INFORMATION
  Report Type: Spontaneous
  Country: IL (occurrence: IL)
  Receive Date: 20240729
  Receipt Date: 20240729
  Transmission Date: 20241017
  Serious: Yes (Death)
  Sender: TEVA
  Company Number: IL-TEVA-VS-3224484

PATIENT
  Age: 75 Year
  Sex: Female

DRUGS (4)
  1. CARBOPLATIN [Suspect]
     Active Substance: CARBOPLATIN
     Indication: Non-small cell lung cancer stage IIIB
     Dosage: 3 CYCLES
     Route: 065
  2. ERLOTINIB [Concomitant]
     Active Substance: ERLOTINIB
     Indication: Non-small cell lung cancer stage IIIB
     Route: 065
     Dates: end: 201709
  3. Osimertinib? [Concomitant]
     Indication: Non-small cell lung cancer stage IIIB
     Route: 065
  4. PEMETREXED [Suspect]
     Active Substance: PEMETREXED
     Indication: Non-small cell lung cancer stage IIIB
     Dosage: 3 CYCLES
     Route: 065

REACTIONS (1)
  - Drug ineffective [Fatal]
